FAERS Safety Report 4641068-7 (Version None)
Quarter: 2005Q2

REPORT INFORMATION
  Report Type: 
  Country: None (occurrence: None)
  Receive Date: 20050419
  Receipt Date: 20050419
  Transmission Date: 20051028
  Serious: No
  Sender: FDA-Public Use
  Company Number: None

PATIENT
  Age: 50 Year
  Sex: Male
  Weight: 70.7 kg

DRUGS (6)
  1. NAPROXEN [Suspect]
  2. PAROXETINE HCL [Suspect]
  3. ATENOLOL [Concomitant]
  4. PAROXETINE HCL [Concomitant]
  5. SIMVASTATIN [Concomitant]
  6. ACETAMINOPHEN [Concomitant]

REACTIONS (1)
  - URTICARIA [None]
